FAERS Safety Report 11241328 (Version 1)
Quarter: 2015Q3

REPORT INFORMATION
  Report Type: Spontaneous
  Country: US (occurrence: US)
  Receive Date: 20150706
  Receipt Date: 20150706
  Transmission Date: 20151125
  Serious: Yes (Other)
  Sender: FDA-Public Use
  Company Number: US-CELGENEUS-USA-2015062779

PATIENT
  Sex: Female

DRUGS (2)
  1. POMALYST [Suspect]
     Active Substance: POMALIDOMIDE
     Route: 048
     Dates: start: 201506
  2. POMALYST [Suspect]
     Active Substance: POMALIDOMIDE
     Indication: MONOCLONAL GAMMOPATHY
     Route: 048
     Dates: start: 20150422, end: 2015

REACTIONS (4)
  - Dizziness [Not Recovered/Not Resolved]
  - Fluid retention [Unknown]
  - Monoclonal gammopathy [Not Recovered/Not Resolved]
  - Depressed level of consciousness [Not Recovered/Not Resolved]

NARRATIVE: CASE EVENT DATE: 2015
